FAERS Safety Report 9521787 (Version 3)
Quarter: 2014Q1

REPORT INFORMATION
  Report Type: Report from Study
  Country: TR (occurrence: TR)
  Receive Date: 20130913
  Receipt Date: 20140109
  Transmission Date: 20141002
  Serious: No
  Sender: FDA-Public Use
  Company Number: PHHY2013TR098471

PATIENT
  Age: 26 Year
  Sex: Male
  Weight: 87 kg

DRUGS (2)
  1. SANDOSTATIN LAR [Suspect]
     Indication: ACROMEGALY
     Dosage: 30 MG, EVERY 4 WEEKS
     Route: 030
     Dates: start: 201207, end: 20140103
  2. SANDOSTATIN LAR [Suspect]
     Indication: PITUITARY TUMOUR BENIGN

REACTIONS (1)
  - Drug ineffective [Unknown]
